FAERS Safety Report 26202206 (Version 1)
Quarter: 2025Q4

REPORT INFORMATION
  Report Type: Spontaneous
  Country: JP (occurrence: JP)
  Receive Date: 20251226
  Receipt Date: 20251226
  Transmission Date: 20260117
  Serious: Yes (Death, Other)
  Sender: SANOFI AVENTIS
  Company Number: JP-SAKK-2025SA374468AA

PATIENT
  Age: 10 Decade
  Sex: Male

DRUGS (4)
  1. CABLIVI [Suspect]
     Active Substance: CAPLACIZUMAB-YHDP
     Indication: Thrombotic thrombocytopenic purpura
     Dosage: 1 V/DAY
     Route: 058
     Dates: start: 20251214, end: 20251214
  2. CABLIVI [Suspect]
     Active Substance: CAPLACIZUMAB-YHDP
     Indication: Thrombotic thrombocytopenic purpura
     Dosage: 1 V/DAY
     Route: 058
     Dates: start: 20251214, end: 20251214
  3. CABLIVI [Suspect]
     Active Substance: CAPLACIZUMAB-YHDP
     Indication: Thrombotic thrombocytopenic purpura
     Dosage: 1 V/DAY
     Route: 058
     Dates: start: 20251214, end: 20251214
  4. CABLIVI [Suspect]
     Active Substance: CAPLACIZUMAB-YHDP
     Indication: Thrombotic thrombocytopenic purpura
     Dosage: 1 V/DAY
     Route: 058
     Dates: start: 20251214, end: 20251214

REACTIONS (1)
  - Signet-ring cell carcinoma [Fatal]

NARRATIVE: CASE EVENT DATE: 20251214
